FAERS Safety Report 12561429 (Version 2)
Quarter: 2016Q3

REPORT INFORMATION
  Report Type: Spontaneous
  Country: US (occurrence: US)
  Receive Date: 20160715
  Receipt Date: 20160818
  Transmission Date: 20161109
  Serious: Yes (Other)
  Sender: FDA-Public Use
  Company Number: US-PFIZER INC-2016341672

PATIENT
  Age: 68 Year
  Sex: Male

DRUGS (3)
  1. LIDOCAINE HCL [Interacting]
     Active Substance: LIDOCAINE HYDROCHLORIDE
     Dosage: 4 MG/MIN (62 MICROGRAM/KG WEIGHT/MIN)
     Route: 041
  2. LIDOCAINE HCL [Suspect]
     Active Substance: LIDOCAINE HYDROCHLORIDE
     Indication: VENTRICULAR ARRHYTHMIA
     Dosage: 80 MG, UNK
     Route: 040
  3. QUINIDINE [Interacting]
     Active Substance: QUINIDINE
     Indication: VENTRICULAR ARRHYTHMIA
     Dosage: 300 MG Q SIX HOURS

REACTIONS (4)
  - Drug interaction [Unknown]
  - Sinus arrest [Unknown]
  - Nodal rhythm [Unknown]
  - Myocardial infarction [Unknown]
